FAERS Safety Report 20663333 (Version 1)
Quarter: 2022Q2

REPORT INFORMATION
  Report Type: Spontaneous
  Country: US (occurrence: None)
  Receive Date: 20220401
  Receipt Date: 20220401
  Transmission Date: 20220721
  Serious: Yes (Other)
  Sender: FDA-Public Use
  Company Number: US-Hikma Pharmaceuticals USA Inc.-US-H14001-22-00907

PATIENT
  Age: 26 Year
  Sex: Male

DRUGS (1)
  1. METHAMPHETAMINE [Suspect]
     Active Substance: METHAMPHETAMINE
     Indication: Product used for unknown indication
     Dosage: UNKNOWN
     Route: 065

REACTIONS (10)
  - Staphylococcal infection [Unknown]
  - Alpha haemolytic streptococcal infection [Unknown]
  - Corneal infection [Unknown]
  - Keratitis bacterial [Unknown]
  - Neurotrophic keratopathy [Unknown]
  - Superficial injury of eye [Unknown]
  - Condition aggravated [Unknown]
  - Visual impairment [Unknown]
  - Toxicity to various agents [Unknown]
  - Drug use disorder [Unknown]
